FAERS Safety Report 9625092 (Version 1)
Quarter: 2013Q4

REPORT INFORMATION
  Report Type: Report from Study
  Country: CN (occurrence: CN)
  Receive Date: 20131016
  Receipt Date: 20131016
  Transmission Date: 20140711
  Serious: Yes (Hospitalization, Other)
  Sender: FDA-Public Use
  Company Number: CN-ROCHE-1289229

PATIENT
  Age: 51 Year
  Sex: Male
  Weight: 73 kg

DRUGS (2)
  1. PEGASYS [Suspect]
     Indication: HEPATITIS C
     Route: 058
     Dates: start: 20120509, end: 201304
  2. RIBAVIRIN [Concomitant]
     Indication: HEPATITIS C
     Route: 048
     Dates: start: 20120509, end: 201304

REACTIONS (4)
  - Hyperthyroidism [Unknown]
  - Hepatitis C [Unknown]
  - White blood cell count decreased [Unknown]
  - Weight decreased [Unknown]
